FAERS Safety Report 11089850 (Version 3)
Quarter: 2015Q2

REPORT INFORMATION
  Report Type: Spontaneous
  Country: JP (occurrence: None)
  Receive Date: 20150501
  Receipt Date: 20150501
  Transmission Date: 20150821
  Serious: No
  Sender: FDA-Public Use
  Company Number: 2015JP002373

PATIENT
  Age: 63 Year
  Sex: Male

DRUGS (5)
  1. MUCOSTA [Suspect]
     Active Substance: REBAMIPIDE
     Indication: PRODUCT USED FOR UNKNOWN INDICATION
     Route: 048
     Dates: end: 20150316
  2. BLOPRESS (CANDESARTAN CILEXETIL) [Concomitant]
     Active Substance: CANDESARTAN CILEXETIL
  3. REGNITE (GABAPENTIN ENACARBIL) TABLET, 300MG [Suspect]
     Active Substance: GABAPENTIN ENACARBIL
     Indication: RESTLESS LEGS SYNDROME
     Route: 048
     Dates: end: 20150316
  4. AMLODIN (AMLODIPINE BESILATE) [Concomitant]
  5. CELECOXIB (CELECOXIB) [Suspect]
     Active Substance: CELECOXIB
     Indication: PRODUCT USED FOR UNKNOWN INDICATION
     Route: 048
     Dates: end: 20150316

REACTIONS (5)
  - Gastrointestinal disorder [None]
  - Intentional product use issue [None]
  - Intervertebral disc protrusion [None]
  - Nausea [None]
  - Surgery [None]
